FAERS Safety Report 5741244-6 (Version None)
Quarter: 2008Q2

REPORT INFORMATION
  Report Type: 
  Country: None (occurrence: None)
  Receive Date: 20080516
  Receipt Date: 20080508
  Transmission Date: 20081010
  Serious: Yes (Other)
  Sender: FDA-Public Use
  Company Number: US-PFIZER INC-2008041418

PATIENT
  Sex: Female
  Weight: 61.2 kg

DRUGS (2)
  1. LIPITOR [Suspect]
     Indication: BLOOD TRIGLYCERIDES
  2. SYNTHROID [Concomitant]
     Indication: THYROID DISORDER

REACTIONS (1)
  - BALANCE DISORDER [None]
